FAERS Safety Report 6572442-X (Version None)
Quarter: 2010Q1

REPORT INFORMATION
  Report Type: 
  Country: None (occurrence: None)
  Receive Date: 20100205
  Receipt Date: 20100128
  Transmission Date: 20100710
  Serious: Yes (Hospitalization)
  Sender: FDA-Public Use
  Company Number: IT-PFIZER INC-2009302982

PATIENT
  Age: 33 Year
  Sex: Male

DRUGS (3)
  1. TORVAST [Suspect]
     Indication: HYPERCHOLESTEROLAEMIA
     Dosage: 40 MG, DAILY
     Route: 048
     Dates: start: 20090831, end: 20091029
  2. MEDROL [Suspect]
     Indication: MULTIPLE SCLEROSIS
     Dosage: 32 MG, DAILY
     Route: 048
     Dates: start: 20090905, end: 20090918
  3. METHYLPREDNISOLONE [Suspect]
     Indication: MULTIPLE SCLEROSIS
     Dosage: 1 G, DAILY
     Route: 042
     Dates: start: 20090831, end: 20090904

REACTIONS (1)
  - HEPATITIS ACUTE [None]
